FAERS Safety Report 5217777-8 (Version None)
Quarter: 2007Q1

REPORT INFORMATION
  Report Type: 
  Country: None (occurrence: None)
  Receive Date: 20061130
  Receipt Date: 20060927
  Transmission Date: 20070707
  Serious: Yes (Hospitalization)
  Sender: FDA-Public Use
  Company Number: US200608004349

PATIENT
  Age: 89 Year
  Sex: Female
  Weight: 68.9 kg

DRUGS (2)
  1. ZYPREXA [Suspect]
     Dosage: 2.5 MG; 5 MG, DAILY (1/D)
     Dates: start: 20020301
  2. ZYPREXA [Suspect]
     Dosage: 2.5 MG; 5 MG, DAILY (1/D)
     Dates: start: 20050101

REACTIONS (3)
  - CEREBROVASCULAR ACCIDENT [None]
  - DIABETES MELLITUS [None]
  - METABOLIC DISORDER [None]
